FAERS Safety Report 25737861 (Version 1)
Quarter: 2025Q3

REPORT INFORMATION
  Report Type: Spontaneous
  Country: US (occurrence: US)
  Receive Date: 20250828
  Receipt Date: 20250828
  Transmission Date: 20251021
  Serious: No
  Sender: COLLEGIUM PHARMACEUTICAL
  Company Number: US-COLLEGIUM PHARMACEUTICAL, INC.-20241101136

PATIENT
  Age: 13 Year
  Sex: Female

DRUGS (1)
  1. JORNAY PM EXTENDED-RELEASE [Suspect]
     Active Substance: METHYLPHENIDATE HYDROCHLORIDE
     Indication: Attention deficit hyperactivity disorder
     Route: 048
     Dates: start: 20241101

REACTIONS (4)
  - Apathy [Unknown]
  - Agitation [Unknown]
  - Mania [Unknown]
  - Disorientation [Unknown]

NARRATIVE: CASE EVENT DATE: 20241103
